FAERS Safety Report 13257180 (Version 4)
Quarter: 2017Q1

REPORT INFORMATION
  Report Type: Spontaneous
  Country: CN (occurrence: CN)
  Receive Date: 20170221
  Receipt Date: 20170302
  Transmission Date: 20170428
  Serious: Yes (Life-Threatening, Hospitalization, Other)
  Sender: FDA-Public Use
  Company Number: CN-PFIZER INC-2017072534

PATIENT
  Age: 75 Year
  Sex: Male

DRUGS (5)
  1. AMIODARONE HCL [Interacting]
     Active Substance: AMIODARONE HYDROCHLORIDE
     Dosage: LOADING 150 MG IN 20 MIN AND MAINTAINING 600 MG FOR 8 H
     Route: 042
  2. AMIODARONE HCL [Interacting]
     Active Substance: AMIODARONE HYDROCHLORIDE
     Dosage: 200 MG, 3X/DAY (FOR 1 WEEK)
     Route: 048
  3. LINEZOLID. [Concomitant]
     Active Substance: LINEZOLID
     Dosage: UNK
  4. FLUCONAZOLE. [Suspect]
     Active Substance: FLUCONAZOLE
     Indication: CANDIDA INFECTION
     Dosage: 200 MG, 2X/DAY (Q12H) (ON DAY 10)
     Route: 042
  5. IMIPENEM [Concomitant]
     Active Substance: IMIPENEM
     Dosage: UNK

REACTIONS (3)
  - Drug interaction [Recovered/Resolved]
  - Ventricular tachycardia [Recovered/Resolved]
  - Cardiac arrest [Recovered/Resolved]
